FAERS Safety Report 6029309-5 (Version None)
Quarter: 2009Q1

REPORT INFORMATION
  Report Type: 
  Country: None (occurrence: None)
  Receive Date: 20090106
  Receipt Date: 20081222
  Transmission Date: 20090719
  Serious: Yes (Other)
  Sender: FDA-Public Use
  Company Number: NL-GENENTECH-274850

PATIENT
  Age: 18 Year
  Sex: Female

DRUGS (5)
  1. MABTHERA [Suspect]
     Indication: NEPHROTIC SYNDROME
     Dosage: 1000 MG, Q2W
     Route: 042
  2. MYCOPHENOLATE MOFETIL [Suspect]
     Indication: NEPHROTIC SYNDROME
     Dosage: 1000 MG, BID
     Route: 065
  3. TACROLIMUS [Suspect]
     Indication: NEPHROTIC SYNDROME
     Dosage: UNK
     Route: 065
  4. PREDNISONE [Suspect]
     Indication: NEPHROTIC SYNDROME
     Dosage: 5 MG, QOD
     Route: 065
  5. METHYLPREDNISOLONE 16MG TAB [Suspect]
     Indication: NEPHROTIC SYNDROME
     Dosage: 3 G, UNK
     Route: 042

REACTIONS (2)
  - BLOOD ALBUMIN DECREASED [None]
  - PROTEINURIA [None]
